FAERS Safety Report 10693577 (Version 3)
Quarter: 2015Q1

REPORT INFORMATION
  Report Type: Report from Study
  Country: US (occurrence: US)
  Receive Date: 20150106
  Receipt Date: 20150320
  Transmission Date: 20150721
  Serious: Yes (Death, Hospitalization, Other)
  Sender: FDA-Public Use
  Company Number: US-CELGENE-163-21880-13062883

PATIENT
  Age: 60 Year
  Sex: Male
  Weight: 73.09 kg

DRUGS (38)
  1. REVLIMID [Suspect]
     Active Substance: LENALIDOMIDE
     Indication: PLASMA CELL MYELOMA RECURRENT
     Route: 048
     Dates: start: 20110728, end: 20130604
  2. OMEPRAZOLE. [Concomitant]
     Active Substance: OMEPRAZOLE
     Route: 048
     Dates: start: 20130613
  3. CALCIUM + VITAMIN D [Concomitant]
     Active Substance: CALCIUM\VITAMIN D
     Indication: SUPPLEMENTATION THERAPY
     Dosage: 1000 MILLIGRAM
     Route: 048
     Dates: start: 20100919, end: 20130610
  4. FENTANYL. [Concomitant]
     Active Substance: FENTANYL
     Indication: SEDATION
     Dosage: 975 MILLIGRAM
     Route: 041
     Dates: start: 20130611, end: 20130611
  5. GLUTAMINE [Concomitant]
     Active Substance: GLUTAMINE
     Indication: NEUROPATHY PERIPHERAL
     Route: 048
     Dates: start: 20100922
  6. PSYLLIUM [Concomitant]
     Active Substance: PLANTAGO SEED
     Indication: SUPPLEMENTATION THERAPY
     Dosage: 1 PACKET
     Route: 048
     Dates: start: 20130614
  7. VITAMIN C [Concomitant]
     Active Substance: ASCORBIC ACID
     Route: 065
  8. ASPIRIN. [Concomitant]
     Active Substance: ASPIRIN
     Indication: ANTIPLATELET THERAPY
     Route: 065
  9. VERSED [Concomitant]
     Active Substance: MIDAZOLAM HYDROCHLORIDE
     Indication: SEDATION
     Route: 041
     Dates: start: 20130611, end: 20130611
  10. VERSED [Concomitant]
     Active Substance: MIDAZOLAM HYDROCHLORIDE
     Dosage: 4 MILLIGRAM
     Route: 041
     Dates: start: 20130613, end: 20130613
  11. REVLIMID [Suspect]
     Active Substance: LENALIDOMIDE
     Route: 048
     Dates: start: 20130606, end: 20130609
  12. ACYCLOVIR. [Concomitant]
     Active Substance: ACYCLOVIR
     Route: 041
     Dates: start: 20130614
  13. GLUTAMINE [Concomitant]
     Active Substance: GLUTAMINE
     Route: 048
  14. SENNA S [Concomitant]
     Active Substance: DOCUSATE SODIUM\SENNA LEAF
     Indication: CONSTIPATION
     Dosage: 2 CAPSULE
     Route: 048
     Dates: start: 20100919, end: 20130610
  15. VICODIN [Concomitant]
     Active Substance: ACETAMINOPHEN\HYDROCODONE BITARTRATE
     Dosage: 1-2 TABS
     Route: 048
     Dates: start: 20130615
  16. VITAMIN D [Concomitant]
     Active Substance: CHOLECALCIFEROL
     Route: 065
  17. DEXAMETHASONE. [Suspect]
     Active Substance: DEXAMETHASONE
     Route: 065
     Dates: start: 20130530, end: 20130606
  18. ACYCLOVIR. [Concomitant]
     Active Substance: ACYCLOVIR
     Indication: ANTIVIRAL PROPHYLAXIS
     Route: 048
     Dates: start: 20100603, end: 20130609
  19. AMBIEN [Concomitant]
     Active Substance: ZOLPIDEM TARTRATE
     Indication: INSOMNIA
     Route: 048
     Dates: start: 20130502
  20. ASPIRIN. [Concomitant]
     Active Substance: ASPIRIN
     Indication: ANTICOAGULANT THERAPY
     Dosage: 1200 MILLIGRAM
     Route: 048
     Dates: start: 20110627, end: 20130609
  21. OMEPRAZOLE. [Concomitant]
     Active Substance: OMEPRAZOLE
     Route: 065
  22. REVLIMID [Suspect]
     Active Substance: LENALIDOMIDE
     Route: 048
     Dates: start: 20130605, end: 20130605
  23. DEXAMETHASONE. [Suspect]
     Active Substance: DEXAMETHASONE
     Indication: PLASMA CELL MYELOMA RECURRENT
     Route: 065
     Dates: start: 20110728, end: 20130523
  24. THALOMID [Suspect]
     Active Substance: THALIDOMIDE
     Dosage: 50MG TO 200MG
     Route: 048
     Dates: start: 201405
  25. ACYCLOVIR. [Concomitant]
     Active Substance: ACYCLOVIR
     Route: 041
     Dates: start: 20130611, end: 20130614
  26. CALCIUM CARBONATE. [Concomitant]
     Active Substance: CALCIUM CARBONATE
     Indication: SUPPLEMENTATION THERAPY
     Route: 048
     Dates: start: 20130614
  27. OMEPRAZOLE. [Concomitant]
     Active Substance: OMEPRAZOLE
     Indication: DRUG THERAPY
     Route: 048
     Dates: start: 20110727, end: 20130609
  28. POTASSIUM CHLORIDE. [Concomitant]
     Active Substance: POTASSIUM CHLORIDE
     Indication: HYPOKALAEMIA
     Route: 048
     Dates: start: 20130613, end: 20130613
  29. ZOMETA [Concomitant]
     Active Substance: ZOLEDRONIC ACID
     Indication: DRUG THERAPY
     Route: 041
     Dates: start: 20110920, end: 20130530
  30. CHOLECALCIFEROL [Concomitant]
     Active Substance: CHOLECALCIFEROL
     Indication: SUPPLEMENTATION THERAPY
     Dosage: 1000 UNITS
     Route: 048
     Dates: start: 20130613
  31. FENTANYL. [Concomitant]
     Active Substance: FENTANYL
     Route: 041
     Dates: start: 20130613, end: 20130613
  32. VICODIN [Concomitant]
     Active Substance: ACETAMINOPHEN\HYDROCODONE BITARTRATE
     Indication: BACK PAIN
     Dosage: 1-2 TABS
     Route: 048
     Dates: start: 20100909, end: 20130611
  33. VITAMIN B COMPLEX [Concomitant]
     Active Substance: CYANOCOBALAMIN\DEXPANTHENOL\NIACINAMIDE\PYRIDOXINE HYDROCHLORIDE\RIBOFLAVIN 5^-PHOSPHATE SODIUM\THIAMINE HYDROCHLORIDE\VITAMIN B COMPLEX
     Indication: SUPPLEMENTATION THERAPY
     Dosage: 100 MICROGRAM
     Route: 048
     Dates: start: 20101209
  34. VITAMIN D [Concomitant]
     Active Substance: CHOLECALCIFEROL
     Indication: SUPPLEMENTATION THERAPY
     Dosage: 400 MILLIGRAM
     Route: 048
     Dates: start: 20101014
  35. THALOMID [Suspect]
     Active Substance: THALIDOMIDE
     Indication: PLASMA CELL MYELOMA
     Route: 048
     Dates: start: 20121116
  36. FERROUS SULFATE [Concomitant]
     Active Substance: FERROUS SULFATE\FERROUS SULFATE, DRIED
     Indication: IRON DEFICIENCY
     Route: 048
     Dates: start: 20120405
  37. VITAMIN K [Concomitant]
     Active Substance: PHYTONADIONE
     Route: 065
  38. IMATINIB [Concomitant]
     Active Substance: IMATINIB
     Route: 048

REACTIONS (2)
  - Plasma cell myeloma [Fatal]
  - Gastrointestinal stromal tumour [Fatal]

NARRATIVE: CASE EVENT DATE: 20130613
